FAERS Safety Report 6231582-5 (Version None)
Quarter: 2009Q2

REPORT INFORMATION
  Report Type: 
  Country: None (occurrence: None)
  Receive Date: 20090612
  Receipt Date: 20090603
  Transmission Date: 20091009
  Serious: Yes (Other)
  Sender: FDA-Public Use
  Company Number: 220002K09DEU

PATIENT
  Sex: Female

DRUGS (1)
  1. SAIZEN [Suspect]

REACTIONS (1)
  - GERM CELL CANCER [None]
